FAERS Safety Report 5940252-X (Version None)
Quarter: 2008Q4

REPORT INFORMATION
  Report Type: 
  Country: None (occurrence: None)
  Receive Date: 20081104
  Receipt Date: 20081028
  Transmission Date: 20090506
  Serious: Yes (Hospitalization)
  Sender: FDA-Public Use
  Company Number: US-AMGEN-QUU273602

PATIENT
  Sex: Female
  Weight: 116.7 kg

DRUGS (12)
  1. ENBREL [Suspect]
     Indication: RHEUMATOID ARTHRITIS
     Route: 058
     Dates: start: 20040901, end: 20070101
  2. ENBREL [Suspect]
     Indication: PSORIASIS
  3. LANTUS [Concomitant]
     Route: 058
  4. NOVOLIN R [Concomitant]
     Route: 058
     Dates: end: 20070301
  5. AMARYL [Concomitant]
     Route: 048
     Dates: start: 20021023
  6. GLUCOPHAG [Concomitant]
     Route: 048
     Dates: start: 20021023
  7. SYNTHROID [Concomitant]
     Route: 048
     Dates: start: 19980401
  8. DILTIAZEM HCL [Concomitant]
     Route: 048
     Dates: start: 20010403
  9. LANOXIN [Concomitant]
     Route: 048
  10. FERROUS SULFATE [Concomitant]
     Route: 048
     Dates: end: 20070401
  11. TYLENOL [Concomitant]
     Route: 048
  12. CRESTOR [Concomitant]
     Route: 048
     Dates: end: 20071230

REACTIONS (7)
  - ANAEMIA POSTOPERATIVE [None]
  - DEEP VEIN THROMBOSIS [None]
  - FIBULA FRACTURE [None]
  - JOINT INSTABILITY [None]
  - OSTEOARTHRITIS [None]
  - PSORIASIS [None]
  - TUBERCULIN TEST POSITIVE [None]
